FAERS Safety Report 5090989-2 (Version None)
Quarter: 2006Q3

REPORT INFORMATION
  Report Type: 
  Country: None (occurrence: None)
  Receive Date: 20060727
  Receipt Date: 20060417
  Transmission Date: 20061208
  Serious: Yes (Other)
  Sender: FDA-Public Use
  Company Number: 2006053112

PATIENT
  Age: 46 Year
  Sex: Female

DRUGS (3)
  1. LYRICA [Suspect]
     Indication: FIBROMYALGIA
     Dosage: 50 MG (50 MG, 2 IN 1 D), ORAL
     Route: 048
     Dates: start: 20060407
  2. LYRICA [Suspect]
     Indication: NEURALGIA
     Dosage: 50 MG (50 MG, 2 IN 1 D), ORAL
     Route: 048
     Dates: start: 20060407
  3. ZOLOFT [Concomitant]

REACTIONS (1)
  - PARAESTHESIA [None]
